FAERS Safety Report 24137858 (Version 1)
Quarter: 2024Q3

REPORT INFORMATION
  Report Type: Spontaneous
  Country: CH (occurrence: CH)
  Receive Date: 20240725
  Receipt Date: 20240725
  Transmission Date: 20241017
  Serious: Yes (Hospitalization, Other)
  Sender: TEVA
  Company Number: None

PATIENT
  Age: 54 Year
  Sex: Female

DRUGS (10)
  1. BEVACIZUMAB [Suspect]
     Active Substance: BEVACIZUMAB
     Indication: Biphasic mesothelioma
     Dosage: 1 CYCLE EVERY 21 DAYS
     Route: 065
     Dates: start: 20230526, end: 20240405
  2. Paspertin [Concomitant]
     Indication: Nausea
     Dosage: TIME INTERVAL: AS NECESSARY: 10MG 3X/D IN RESERVE FOR AT LEAST 1 YEAR
     Route: 065
  3. DEXAMETHASONE [Concomitant]
     Active Substance: DEXAMETHASONE
     Indication: Nausea
     Dosage: 4 MG 2X/D THE DAY BEFORE, THE DAY AND THE DAY AFTER CYCLES
     Route: 065
     Dates: start: 20230526
  4. BUPIVACAINE [Concomitant]
     Active Substance: BUPIVACAINE
     Indication: Chest pain
     Dosage: 53.98 MG/24H
     Route: 037
     Dates: start: 20230419
  5. MORPHINE [Concomitant]
     Active Substance: MORPHINE
     Indication: Chest pain
     Dosage: 12.15 MG/24H + BOLUS
     Route: 037
     Dates: start: 20230419
  6. FOLIC ACID [Concomitant]
     Active Substance: FOLIC ACID
     Indication: Product used for unknown indication
     Route: 065
     Dates: start: 20230515
  7. NEXIUM [Concomitant]
     Active Substance: ESOMEPRAZOLE MAGNESIUM
     Indication: Product used for unknown indication
     Dosage: SINCE LESS THAN 1 YEAR
     Route: 065
  8. CYMBALTA [Suspect]
     Active Substance: DULOXETINE HYDROCHLORIDE
     Indication: Product used for unknown indication
     Dosage: FOR AT LEAST 1 YEAR
     Route: 065
  9. MOVICOL [Concomitant]
     Active Substance: POLYETHYLENE GLYCOL 3350\POTASSIUM CHLORIDE\SODIUM BICARBONATE\SODIUM CHLORIDE
     Indication: Product used for unknown indication
     Dosage: FOR AT LEAST 1 YEAR (1 {DF}), 1 SACHET 1X/D,
     Route: 065
  10. PEMETREXED [Suspect]
     Active Substance: PEMETREXED
     Indication: Biphasic mesothelioma
     Dosage: 1 CYCLE EVERY 21 DAYS
     Route: 065
     Dates: start: 20230526, end: 20240405

REACTIONS (2)
  - Erythema [Recovering/Resolving]
  - Pain of skin [Recovering/Resolving]

NARRATIVE: CASE EVENT DATE: 20240101
